FAERS Safety Report 9467758 (Version 1)
Quarter: 2013Q3

REPORT INFORMATION
  Report Type: Spontaneous
  Country: US (occurrence: None)
  Receive Date: 20130819
  Receipt Date: 20130819
  Transmission Date: 20140515
  Serious: Yes (Disabling)
  Sender: FDA-Public Use
  Company Number: None

PATIENT
  Age: 32 Year
  Sex: Female
  Weight: 66.23 kg

DRUGS (2)
  1. ESCITALOPRAM [Suspect]
     Indication: ANXIETY
     Dosage: 10MG?ONCE DAILY?TAKEN BY MOUTH?7 DAYS
     Route: 048
  2. ESCITALOPRAM [Suspect]
     Indication: DEPRESSION
     Dosage: 10MG?ONCE DAILY?TAKEN BY MOUTH?7 DAYS
     Route: 048

REACTIONS (6)
  - Migraine [None]
  - Dizziness [None]
  - Confusional state [None]
  - Anxiety [None]
  - Hyporeflexia [None]
  - Hypokinesia [None]
